FAERS Safety Report 6933759-X (Version None)
Quarter: 2010Q3

REPORT INFORMATION
  Report Type: 
  Country: None (occurrence: None)
  Receive Date: 20100817
  Receipt Date: 20100811
  Transmission Date: 20110219
  Serious: Yes (Other)
  Sender: FDA-Public Use
  Company Number: 2010SP043477

PATIENT
  Age: 58 Year
  Sex: Female

DRUGS (8)
  1. NASONEX [Suspect]
     Indication: RHINITIS ALLERGIC
     Dosage: 2 DF;BID
     Dates: start: 20080101
  2. WARFARIN SODIUM (CON.) [Concomitant]
  3. COREG (CON.) [Concomitant]
  4. DIGOXIN /00545901/ (CON.) [Concomitant]
  5. COZAAR (CON.) [Concomitant]
  6. CELEXA (CON.) / 00582602/ [Concomitant]
  7. AMBIEN (CON.) [Concomitant]
  8. POTASSIUM (CON.) / 00031601/ [Concomitant]

REACTIONS (2)
  - ANOSMIA [None]
  - EPISTAXIS [None]
